FAERS Safety Report 21824880 (Version 1)
Quarter: 2023Q1

REPORT INFORMATION
  Report Type: Report from Study
  Country: US (occurrence: US)
  Receive Date: 20230105
  Receipt Date: 20230105
  Transmission Date: 20230418
  Serious: Yes (Hospitalization, Other)
  Sender: FDA-Public Use
  Company Number: US-PFIZER INC-202200803728

PATIENT
  Age: 62 Year
  Sex: Female
  Weight: 101.3 kg

DRUGS (4)
  1. IBRANCE [Suspect]
     Active Substance: PALBOCICLIB
     Indication: Breast cancer metastatic
     Dosage: 125 MG, CYCLIC (ONCE DAILY, 21 DAYS ON/7 DAYS OFF)
     Route: 048
     Dates: start: 20220428
  2. IBRANCE [Suspect]
     Active Substance: PALBOCICLIB
     Dosage: 125 MG, CYCLIC (ONCE DAILY, 21 DAYS ON/7 DAYS OFF)
     Route: 048
     Dates: start: 20220602
  3. IBRANCE [Suspect]
     Active Substance: PALBOCICLIB
     Dosage: 100 MG, CYCLIC, (DAILY FOR 21 DAYS ON, 7 OFF)
     Route: 048
     Dates: start: 202207, end: 20221029
  4. FASLODEX [Concomitant]
     Active Substance: FULVESTRANT
     Dosage: UNK

REACTIONS (12)
  - Pneumonitis [Not Recovered/Not Resolved]
  - Acute respiratory failure [Not Recovered/Not Resolved]
  - Hypoxia [Not Recovered/Not Resolved]
  - Pneumonia [Unknown]
  - White blood cell count decreased [Recovering/Resolving]
  - Decreased appetite [Unknown]
  - Weight decreased [Unknown]
  - Asthenia [Unknown]
  - Night sweats [Unknown]
  - Nausea [Unknown]
  - Taste disorder [Unknown]
  - Product dose omission in error [Unknown]

NARRATIVE: CASE EVENT DATE: 20221021
